FAERS Safety Report 7402692-1 (Version None)
Quarter: 2011Q2

REPORT INFORMATION
  Report Type: 
  Country: None (occurrence: None)
  Receive Date: 20110408
  Receipt Date: 20110402
  Transmission Date: 20111010
  Serious: Yes (Life-Threatening, Hospitalization, Disabling)
  Sender: FDA-Public Use
  Company Number: DE-ROCHE-725458

PATIENT
  Sex: Male
  Weight: 72 kg

DRUGS (4)
  1. PEGINTERFERON ALFA-2A [Suspect]
     Route: 058
     Dates: start: 20090907, end: 20100906
  2. COPEGUS [Suspect]
     Indication: HEPATITIS C
     Route: 048
     Dates: start: 20090907, end: 20100906
  3. GLIBENCLAMID [Concomitant]
     Indication: DIABETES MELLITUS
     Route: 048
  4. PARACETAMOL [Concomitant]

REACTIONS (3)
  - WEIGHT DECREASED [None]
  - PANCREATIC CARCINOMA [None]
  - PANCREATITIS [None]
